FAERS Safety Report 4352909-5 (Version None)
Quarter: 2004Q2

REPORT INFORMATION
  Report Type: 
  Country: None (occurrence: None)
  Receive Date: 20040428
  Receipt Date: 20040412
  Transmission Date: 20050107
  Serious: Yes (Death)
  Sender: FDA-Public Use
  Company Number: WAES 0404USA01651

PATIENT
  Sex: Female

DRUGS (5)
  1. COSMEGEN [Suspect]
     Indication: GESTATIONAL TROPHOBLASTIC TUMOUR
     Route: 042
  2. CISPLATIN [Concomitant]
  3. CYCLOPHOSPHAMIDE [Concomitant]
  4. ETOPOSIDE [Concomitant]
  5. METHOTREXATE [Concomitant]

REACTIONS (1)
  - DEATH [None]
